FAERS Safety Report 15648379 (Version 7)
Quarter: 2019Q1

REPORT INFORMATION
  Report Type: Spontaneous
  Country: US (occurrence: US)
  Receive Date: 20181122
  Receipt Date: 20190318
  Transmission Date: 20190417
  Serious: Yes (Other)
  Sender: FDA-Public Use
  Company Number: US-PFIZER INC-2018475897

PATIENT
  Age: 62 Year
  Sex: Female
  Weight: 79 kg

DRUGS (12)
  1. CLONAZINE [Concomitant]
     Indication: MUSCLE RELAXANT THERAPY
     Dosage: 4 MG, 2 TABLETS EVERY 8 HOURS OR AS NEEDED
  2. SYNTHROID [Concomitant]
     Active Substance: LEVOTHYROXINE SODIUM
     Indication: THYROIDITIS
     Dosage: UNK
  3. VENLAFAXINE [Concomitant]
     Active Substance: VENLAFAXINE HYDROCHLORIDE
     Indication: ADJUSTMENT DISORDER WITH DEPRESSED MOOD
     Dosage: 225 MG, 1X/DAY
  4. EXCEDRIN MIGRAINE [Concomitant]
     Active Substance: ACETAMINOPHEN\ASPIRIN\CAFFEINE
     Indication: MIGRAINE
     Dosage: UNK
  5. IBRANCE [Suspect]
     Active Substance: PALBOCICLIB
     Indication: BREAST CANCER STAGE IV
     Dosage: 125 MG, CYCLIC (DAILY WITH FOOD FOR 21 DAYS, THEN 7 DAYS OFF)
     Route: 048
     Dates: start: 201705
  6. CLONAZEPAM. [Concomitant]
     Active Substance: CLONAZEPAM
     Dosage: 2 MG, ONE TABLET EVERY 8 HOURS OR AS NEEDED
  7. IBRANCE [Suspect]
     Active Substance: PALBOCICLIB
     Dosage: UNK
  8. TRESIBA [Concomitant]
     Active Substance: INSULIN DEGLUDEC
     Indication: DIABETES MELLITUS
     Dosage: UNK (20 UNITS ONCE A DAY)
  9. FASLODEX [Concomitant]
     Active Substance: FULVESTRANT
     Indication: BREAST CANCER
     Dosage: UNK, ONCE A MONTH
     Dates: start: 201706
  10. ATORVASTATIN [Concomitant]
     Active Substance: ATORVASTATIN
     Indication: BLOOD CHOLESTEROL
     Dosage: 80 MG, 1X/DAY
  11. NOVOLOG [Concomitant]
     Active Substance: INSULIN ASPART
     Indication: DIABETES MELLITUS
     Dosage: UNK
  12. IRON [Concomitant]
     Active Substance: IRON
     Dosage: UNK

REACTIONS (13)
  - Sleep disorder [Not Recovered/Not Resolved]
  - Cough [Recovered/Resolved]
  - Myocardial infarction [Unknown]
  - Schizophrenia [Unknown]
  - Tooth fracture [Unknown]
  - Nasopharyngitis [Unknown]
  - Crying [Unknown]
  - Depression [Not Recovered/Not Resolved]
  - Rib fracture [Unknown]
  - Asthenia [Unknown]
  - Feeling abnormal [Not Recovered/Not Resolved]
  - Neoplasm progression [Unknown]
  - Loss of personal independence in daily activities [Not Recovered/Not Resolved]
